FAERS Safety Report 5619082-4 (Version None)
Quarter: 2008Q1

REPORT INFORMATION
  Report Type: 
  Country: None (occurrence: None)
  Receive Date: 20080207
  Receipt Date: 20080129
  Transmission Date: 20080703
  Serious: Yes (Disabling)
  Sender: FDA-Public Use
  Company Number: BR-PFIZER INC-2008010175

PATIENT
  Sex: Male

DRUGS (1)
  1. SUTENT [Suspect]
     Route: 048

REACTIONS (2)
  - CORNEAL PERFORATION [None]
  - OCULAR DISCOMFORT [None]
